FAERS Safety Report 15266134 (Version 3)
Quarter: 2018Q4

REPORT INFORMATION
  Report Type: Report from Study
  Country: None (occurrence: US)
  Receive Date: 20180810
  Receipt Date: 20181227
  Transmission Date: 20190204
  Serious: Yes (Hospitalization, Other)
  Sender: FDA-Public Use
  Company Number: US-ABBVIE-18K-163-2444624-00

PATIENT
  Age: 47 Year
  Sex: Male
  Weight: 86.26 kg

DRUGS (1)
  1. HUMIRA [Suspect]
     Active Substance: ADALIMUMAB
     Indication: RHEUMATOID ARTHRITIS
     Route: 058

REACTIONS (6)
  - Skin laceration [Recovering/Resolving]
  - Joint noise [Recovered/Resolved]
  - Back pain [Recovered/Resolved]
  - Post procedural complication [Unknown]
  - Mass [Unknown]
  - Peripheral swelling [Recovered/Resolved]
